FAERS Safety Report 8697599 (Version 2)
Quarter: 2012Q4

REPORT INFORMATION
  Report Type: Report from Study
  Country: US (occurrence: US)
  Receive Date: 20120801
  Receipt Date: 20121003
  Transmission Date: 20130627
  Serious: Yes (Other)
  Sender: FDA-Public Use
  Company Number: US-PURDUE-USA-2012-0090633

PATIENT
  Sex: Male

DRUGS (1)
  1. OXYCONTIN (NDA 22-272) [Suspect]
     Indication: PAIN
     Dosage: 60 mg, q12h
     Dates: start: 20120131, end: 20120813

REACTIONS (8)
  - Drug dependence [Unknown]
  - Staphylococcal infection [Unknown]
  - Leg amputation [Unknown]
  - Surgery [Unknown]
  - Intentional drug misuse [Unknown]
  - Pain [Unknown]
  - Drug tolerance [Unknown]
  - Insomnia [Recovered/Resolved]
